FAERS Safety Report 11909628 (Version 1)
Quarter: 2016Q1

REPORT INFORMATION
  Report Type: Report from Study
  Country: US (occurrence: US)
  Receive Date: 20160112
  Receipt Date: 20160112
  Transmission Date: 20160526
  Serious: Yes (Hospitalization)
  Sender: FDA-Public Use
  Company Number: US-ABBVIE-16K-163-1534139-00

PATIENT
  Age: 35 Year
  Sex: Male
  Weight: 64.92 kg

DRUGS (1)
  1. HUMIRA [Suspect]
     Active Substance: ADALIMUMAB
     Indication: ANKYLOSING SPONDYLITIS
     Route: 058
     Dates: start: 20131117

REACTIONS (7)
  - Post procedural discharge [Recovered/Resolved]
  - Post procedural haemorrhage [Recovered/Resolved]
  - Myocardial infarction [Recovering/Resolving]
  - Haemoglobin decreased [Unknown]
  - Blood cholesterol increased [Not Recovered/Not Resolved]
  - Post procedural infection [Recovered/Resolved]
  - Hypertension [Not Recovered/Not Resolved]

NARRATIVE: CASE EVENT DATE: 201511
